FAERS Safety Report 6707560-6 (Version None)
Quarter: 2010Q2

REPORT INFORMATION
  Report Type: 
  Country: None (occurrence: None)
  Receive Date: 20100503
  Receipt Date: 20100423
  Transmission Date: 20101027
  Serious: Yes (Other)
  Sender: FDA-Public Use
  Company Number: BR-PFIZER INC-2010051593

PATIENT
  Age: 56 Year
  Sex: Female
  Weight: 58 kg

DRUGS (2)
  1. CITALOR [Suspect]
     Indication: BLOOD CHOLESTEROL INCREASED
     Dosage: 10 MG, UNK
     Route: 048
     Dates: start: 20050101, end: 20100301
  2. OLCADIL [Concomitant]
     Dosage: 1 MG, UNK

REACTIONS (4)
  - BLOOD CHOLESTEROL INCREASED [None]
  - CONSTIPATION [None]
  - FLATULENCE [None]
  - OESOPHAGITIS [None]
